FAERS Safety Report 8421886-X (Version None)
Quarter: 2012Q2

REPORT INFORMATION
  Report Type: 
  Country: None (occurrence: None)
  Receive Date: 20120608
  Receipt Date: 20120528
  Transmission Date: 20120825
  Serious: Yes (Other)
  Sender: FDA-Public Use
  Company Number: JP-ELI_LILLY_AND_COMPANY-JP201205010398

PATIENT
  Age: 85 Year
  Sex: Female

DRUGS (1)
  1. FORTEO [Suspect]
     Dosage: UNK
     Route: 058
     Dates: start: 20110101

REACTIONS (6)
  - BLOOD POTASSIUM INCREASED [None]
  - OEDEMA PERIPHERAL [None]
  - BLOOD CREATININE INCREASED [None]
  - RENAL IMPAIRMENT [None]
  - HYPOGEUSIA [None]
  - BONE DENSITY DECREASED [None]
